FAERS Safety Report 6191053-1 (Version None)
Quarter: 2009Q2

REPORT INFORMATION
  Report Type: 
  Country: None (occurrence: None)
  Receive Date: 20090513
  Receipt Date: 20090427
  Transmission Date: 20091009
  Serious: Yes (Hospitalization, Other)
  Sender: FDA-Public Use
  Company Number: ADE# 09-172DPR

PATIENT
  Age: 57 Year
  Sex: Female

DRUGS (2)
  1. DIGOXIN [Suspect]
     Indication: NODAL ARRHYTHMIA
  2. PREMARIN [Concomitant]

REACTIONS (5)
  - DYSPNOEA [None]
  - EMBOLISM [None]
  - PAIN [None]
  - PULMONARY THROMBOSIS [None]
  - THROMBOSIS [None]
